FAERS Safety Report 4418013-2 (Version None)
Quarter: 2004Q3

REPORT INFORMATION
  Report Type: 
  Country: None (occurrence: None)
  Receive Date: 20040803
  Receipt Date: 20040721
  Transmission Date: 20050211
  Serious: Yes (Hospitalization)
  Sender: FDA-Public Use
  Company Number: 2004049712

PATIENT
  Age: 77 Year
  Sex: Male

DRUGS (4)
  1. NEURONTIN [Suspect]
     Indication: ILL-DEFINED DISORDER
     Dosage: 1200 MG
     Dates: start: 20040625
  2. LAMALINE (BELLADONNA EXTRACT, CAFFEINE, OPIUM TINCTURE, PARACETAMOL) [Concomitant]
  3. KETOPROFEN [Concomitant]
  4. ALL OTHER THERAPEUTIC PRODUCTS [Concomitant]

REACTIONS (2)
  - CONFUSIONAL STATE [None]
  - PARKINSON'S DISEASE [None]
